FAERS Safety Report 19093435 (Version 1)
Quarter: 2021Q2

REPORT INFORMATION
  Report Type: Spontaneous
  Country: ID (occurrence: ID)
  Receive Date: 20210405
  Receipt Date: 20210405
  Transmission Date: 20210717
  Serious: Yes (Other)
  Sender: FDA-Public Use
  Company Number: ID-LUPIN PHARMACEUTICALS INC.-2021-04217

PATIENT
  Age: 78 Year
  Sex: Male

DRUGS (13)
  1. VITAMIN C [Concomitant]
     Active Substance: ASCORBIC ACID
     Indication: SYMPTOMATIC TREATMENT
     Dosage: 200 MILLIGRAM, TID
     Route: 042
     Dates: start: 2020, end: 2020
  2. AVIGAN [Suspect]
     Active Substance: FAVIPIRAVIR
     Indication: COVID-19
     Dosage: 1200 MILLIGRAM, BID?ON TREATMENT DAY 1
     Route: 065
     Dates: start: 2020, end: 2020
  3. VITAMIN B1 [Concomitant]
     Active Substance: THIAMINE HYDROCHLORIDE
     Indication: SYMPTOMATIC TREATMENT
     Dosage: 100 MILLIGRAM, SINGLE
     Route: 048
     Dates: start: 2020, end: 2020
  4. LEVOFLOXACIN. [Suspect]
     Active Substance: LEVOFLOXACIN
     Indication: COVID-19
     Dosage: 750 MILLIGRAM?EVERY 48 HORS
     Route: 065
     Dates: start: 2020, end: 2020
  5. D5NM [Concomitant]
     Indication: PRODUCT USED FOR UNKNOWN INDICATION
     Dosage: UNK?FLUID THERAPY
     Route: 065
  6. PARACETAMOL [Concomitant]
     Active Substance: ACETAMINOPHEN
     Indication: PYREXIA
     Dosage: UNK
     Route: 048
  7. CALCIUM CHLORIDE. [Concomitant]
     Active Substance: CALCIUM CHLORIDE
     Indication: HYPOKALAEMIA
     Dosage: 25 MILLIEQUIVALENT?IN 500ML SODIUM CHLORIDE
     Route: 042
     Dates: start: 2020, end: 2020
  8. CEFTRIAXONE. [Suspect]
     Active Substance: CEFTRIAXONE
     Indication: COVID-19
     Dosage: 2 GRAM, BID
     Route: 065
     Dates: start: 2020, end: 2020
  9. AVIGAN [Suspect]
     Active Substance: FAVIPIRAVIR
     Dosage: 600 MILLIGRAM, BID
     Route: 065
     Dates: start: 2020, end: 2020
  10. LANTUS [Concomitant]
     Active Substance: INSULIN GLARGINE
     Indication: HYPERGLYCAEMIA
     Dosage: 14 INTERNATIONAL UNIT, SINGLE
     Route: 058
     Dates: start: 2020, end: 2020
  11. SALINE [SODIUM CHLORIDE] [Concomitant]
     Active Substance: SODIUM CHLORIDE
     Indication: VEHICLE SOLUTION USE
     Dosage: 500 MILLILITER?POTASSIUM CHLORIDE IN 500ML IN 24 HOURS
     Route: 042
     Dates: start: 2020, end: 2020
  12. AZITHROMYCIN ANHYDROUS. [Suspect]
     Active Substance: AZITHROMYCIN ANHYDROUS
     Indication: COVID-19
     Dosage: 500 MILLIGRAM, QD
     Route: 065
     Dates: start: 2020, end: 2020
  13. DEXAMETHASONE. [Concomitant]
     Active Substance: DEXAMETHASONE
     Indication: SYMPTOMATIC TREATMENT
     Dosage: 5 MILLIGRAM, BID
     Route: 065
     Dates: start: 2020, end: 2020

REACTIONS (1)
  - Off label use [Unknown]

NARRATIVE: CASE EVENT DATE: 2020
